FAERS Safety Report 9358226 (Version 1)
Quarter: 2013Q2

REPORT INFORMATION
  Report Type: Spontaneous
  Country: US (occurrence: US)
  Receive Date: 20130620
  Receipt Date: 20130620
  Transmission Date: 20140414
  Serious: No
  Sender: FDA-Public Use
  Company Number: US-GALDERMA-US13001094

PATIENT
  Age: 14 Year
  Sex: Female
  Weight: 47 kg

DRUGS (4)
  1. ADAPALENE (ADAPALENE) CREAM, 0.1% [Suspect]
     Indication: ACNE
     Route: 061
     Dates: start: 20130327
  2. CETAPHIL GENTLE CLEANSING BAR [Suspect]
     Indication: THERAPEUTIC SKIN CARE TOPICAL
     Route: 061
     Dates: start: 20130327
  3. SPIRONOLACTONE/CLINDAMYCIN 0.1% [Suspect]
     Indication: ACNE
     Route: 061
     Dates: start: 20130328
  4. MULTIVITAMINS [Concomitant]
     Route: 048

REACTIONS (1)
  - Dry skin [Not Recovered/Not Resolved]
